FAERS Safety Report 8479299-0 (Version None)
Quarter: 2012Q2

REPORT INFORMATION
  Report Type: 
  Country: None (occurrence: None)
  Receive Date: 20120629
  Receipt Date: 20120620
  Transmission Date: 20120825
  Serious: Yes (Other)
  Sender: FDA-Public Use
  Company Number: JP-GLAXOSMITHKLINE-B0802153A

PATIENT
  Age: 68 Year
  Sex: Male
  Weight: 58 kg

DRUGS (2)
  1. PREDNISOLONE [Concomitant]
     Dosage: 60MG PER DAY
     Route: 065
  2. ALKERAN [Suspect]
     Dosage: 12MG PER DAY
     Route: 048

REACTIONS (2)
  - ADENOCARCINOMA [None]
  - COLON CANCER [None]
